FAERS Safety Report 13638367 (Version 1)
Quarter: 2017Q2

REPORT INFORMATION
  Report Type: Spontaneous
  Country: US (occurrence: US)
  Receive Date: 20170609
  Receipt Date: 20170609
  Transmission Date: 20170830
  Serious: No
  Sender: FDA-Public Use
  Company Number: US-AMGEN-USASP2017075536

PATIENT
  Age: 40 Year
  Sex: Male

DRUGS (1)
  1. BLINCYTO [Suspect]
     Active Substance: BLINATUMOMAB
     Indication: ACUTE LYMPHOCYTIC LEUKAEMIA RECURRENT
     Dosage: 9 MUG, UNK
     Route: 065
     Dates: start: 201705

REACTIONS (4)
  - Headache [Unknown]
  - Nervous system disorder [Unknown]
  - Pyrexia [Unknown]
  - Mental disorder [Unknown]

NARRATIVE: CASE EVENT DATE: 20170516
